FAERS Safety Report 13673824 (Version 1)
Quarter: 2017Q2

REPORT INFORMATION
  Report Type: Spontaneous
  Country: US (occurrence: US)
  Receive Date: 20170621
  Receipt Date: 20170621
  Transmission Date: 20170830
  Serious: Yes (Death, Hospitalization)
  Sender: FDA-Public Use
  Company Number: US-LPDUSPRD-20170794

PATIENT
  Age: 4 Year
  Sex: Female

DRUGS (4)
  1. 6-MERCAPTOPURINE [Suspect]
     Active Substance: MERCAPTOPURINE
  2. METHOTREXATE. [Suspect]
     Active Substance: METHOTREXATE
  3. DEXAMETHASONE SODIUM PHOSPHATE INJECTION, USP (4905-25) [Suspect]
     Active Substance: DEXAMETHASONE SODIUM PHOSPHATE
     Dosage: UNKNOWN
     Route: 065
  4. VINCRISTINE [Suspect]
     Active Substance: VINCRISTINE

REACTIONS (3)
  - Epstein-Barr virus infection [Fatal]
  - Histiocytosis haematophagic [Fatal]
  - Lymphoproliferative disorder [Fatal]
